FAERS Safety Report 13382915 (Version 1)
Quarter: 2017Q1

REPORT INFORMATION
  Report Type: Report from Study
  Country: NL (occurrence: NL)
  Receive Date: 20170329
  Receipt Date: 20170329
  Transmission Date: 20170429
  Serious: Yes (Hospitalization)
  Sender: FDA-Public Use
  Company Number: NL-AMGEN-NLDSL2017046428

PATIENT
  Age: 63 Year
  Sex: Female

DRUGS (3)
  1. EXEMESTAAN [Concomitant]
     Active Substance: EXEMESTANE
     Dosage: 25 MG, QD
  2. XGEVA [Suspect]
     Active Substance: DENOSUMAB
     Indication: PROPHYLAXIS
     Dosage: 120 MG IN 1.70 ML, Q4WK
     Route: 058
  3. XGEVA [Suspect]
     Active Substance: DENOSUMAB
     Dosage: UNK
     Route: 058

REACTIONS (2)
  - Pyrexia [Unknown]
  - Cardiac output decreased [Recovering/Resolving]
